FAERS Safety Report 12240158 (Version 5)
Quarter: 2016Q2

REPORT INFORMATION
  Report Type: Spontaneous
  Country: US (occurrence: US)
  Receive Date: 20160405
  Receipt Date: 20160606
  Transmission Date: 20160815
  Serious: Yes (Hospitalization, Other)
  Sender: FDA-Public Use
  Company Number: US-PFIZER INC-2016187117

PATIENT
  Age: 31 Year
  Sex: Female

DRUGS (10)
  1. LEXAPRO [Suspect]
     Active Substance: ESCITALOPRAM OXALATE
     Indication: DEPRESSION
     Dosage: 20 MG TABLET, ONCE PER DAY
     Route: 048
  2. LAMOTRIGINE. [Suspect]
     Active Substance: LAMOTRIGINE
     Indication: BIPOLAR DISORDER
     Dosage: UNK
     Route: 048
  3. GEODON [Suspect]
     Active Substance: ZIPRASIDONE HYDROCHLORIDE\ZIPRASIDONE MESYLATE
     Dosage: 420 MG, SINGLE
     Route: 048
     Dates: start: 20160207, end: 20160207
  4. GEODON [Suspect]
     Active Substance: ZIPRASIDONE HYDROCHLORIDE\ZIPRASIDONE MESYLATE
     Dosage: 60 MG PER DAY (20 MG IN THE MORNING AND 40 MG AT DINNER)
     Route: 048
  5. GEODON [Suspect]
     Active Substance: ZIPRASIDONE HYDROCHLORIDE\ZIPRASIDONE MESYLATE
     Indication: BIPOLAR DISORDER
     Dosage: 20 MG AT DINNER
     Route: 048
     Dates: start: 20150528
  6. LEXAPRO [Suspect]
     Active Substance: ESCITALOPRAM OXALATE
     Indication: ANXIETY
     Dosage: 140 MG, SINGLE
     Route: 048
     Dates: start: 20160207, end: 20160207
  7. ZOLPIDEM TARTRATE. [Suspect]
     Active Substance: ZOLPIDEM TARTRATE
     Indication: INSOMNIA
     Dosage: 10 MG TABLETS PER DAY
     Route: 048
  8. LAMOTRIGINE. [Suspect]
     Active Substance: LAMOTRIGINE
     Dosage: 150 MG TABLETS ONCE PER DAY IN THE MORNING
     Route: 048
  9. ALPRAZOLAM. [Suspect]
     Active Substance: ALPRAZOLAM
     Indication: ANXIETY
     Dosage: 0.5 MG TABLETS, 3 TIMES PER DAY, AS NEEDED
     Route: 048
  10. LAMOTRIGINE. [Suspect]
     Active Substance: LAMOTRIGINE
     Dosage: 1050 MG, SINGLE
     Route: 048
     Dates: start: 20160207, end: 20160207

REACTIONS (9)
  - Neuroleptic malignant syndrome [Not Recovered/Not Resolved]
  - Fatigue [Recovering/Resolving]
  - Overdose [Not Recovered/Not Resolved]
  - Muscle twitching [Recovering/Resolving]
  - Abnormal behaviour [Unknown]
  - Blood alcohol increased [Unknown]
  - Pain [Recovering/Resolving]
  - Seizure [Recovered/Resolved with Sequelae]
  - Loss of consciousness [Recovered/Resolved with Sequelae]

NARRATIVE: CASE EVENT DATE: 2016
